FAERS Safety Report 9325099 (Version 1)
Quarter: 2013Q2

REPORT INFORMATION
  Report Type: Spontaneous
  Country: US (occurrence: None)
  Receive Date: 20130529
  Receipt Date: 20130529
  Transmission Date: 20140414
  Serious: Yes (Death)
  Sender: FDA-Public Use
  Company Number: DSU-2013-03412

PATIENT
  Age: 88 Year
  Sex: Female

DRUGS (1)
  1. BENICAR (OLMESARTAN MEDOXOMIL) (20 MILLIGRAM, TABLET) (OLMESARTAN MEDOXOMIL) [Suspect]
     Indication: HYPERTENSION
     Route: 048
     Dates: start: 2008

REACTIONS (1)
  - Chronic obstructive pulmonary disease [None]
